FAERS Safety Report 11424047 (Version 2)
Quarter: 2015Q3

REPORT INFORMATION
  Report Type: Other
  Country: JP (occurrence: JP)
  Receive Date: 20150827
  Receipt Date: 20150923
  Transmission Date: 20151125
  Serious: Yes (Death)
  Sender: FDA-Public Use
  Company Number: JP-GUERBET LLC-1041425

PATIENT
  Age: 71 Year
  Sex: Female

DRUGS (2)
  1. LIPIODOL [Suspect]
     Active Substance: ETHIODIZED OIL
     Indication: TRANSCATHETER ARTERIAL CHEMOEMBOLISATION
     Route: 013
     Dates: start: 20150110, end: 20150110
  2. HISTOACRYL [Concomitant]
     Active Substance: ENBUCRILATE
     Route: 013

REACTIONS (3)
  - Cholecystitis acute [Unknown]
  - Disseminated intravascular coagulation [Fatal]
  - Sepsis [Fatal]
